FAERS Safety Report 9797454 (Version 1)
Quarter: 2014Q1

REPORT INFORMATION
  Report Type: Spontaneous
  Country: US (occurrence: US)
  Receive Date: 20140106
  Receipt Date: 20140106
  Transmission Date: 20141002
  Serious: Yes (Death, Hospitalization)
  Sender: FDA-Public Use
  Company Number: PHHY2013US151064

PATIENT
  Age: 40 Year
  Sex: Male

DRUGS (13)
  1. VALPROIC ACID [Suspect]
  2. ATROPINE [Suspect]
  3. TOPIRAMATE [Suspect]
  4. EPINEPHRINE [Concomitant]
  5. METFORMIN HYDROCHLORIDE W/ROSIGLITAZONE [Concomitant]
  6. LORAZEPAM [Concomitant]
     Dosage: 4 MG, UNK
     Route: 042
  7. LORAZEPAM [Concomitant]
     Dosage: 4 UNK, UNK
     Route: 042
  8. LORAZEPAM [Concomitant]
     Dosage: 2 UNK, UNK
     Route: 042
  9. FOSPHENYTOIN [Concomitant]
     Dosage: 1 G, UNK
     Route: 042
  10. ETOMIDATE [Concomitant]
     Dosage: 30 MG, UNK
     Route: 042
  11. ROCURONIUM [Concomitant]
     Dosage: 100 MG, UNK
     Route: 042
  12. NORMAL SALINE [Concomitant]
  13. DOPAMINE [Concomitant]
     Dosage: 10 UG/KG, PER MINUTE

REACTIONS (7)
  - Heat stroke [Fatal]
  - Drug reaction with eosinophilia and systemic symptoms [Unknown]
  - Hyperthermia [Unknown]
  - Pyrexia [Unknown]
  - Hepatic enzyme increased [Unknown]
  - Renal failure acute [Unknown]
  - Drug ineffective [Unknown]
